FAERS Safety Report 12964395 (Version 2)
Quarter: 2016Q4

REPORT INFORMATION
  Report Type: Spontaneous
  Country: LT (occurrence: LT)
  Receive Date: 20161122
  Receipt Date: 20161129
  Transmission Date: 20170207
  Serious: Yes (Other)
  Sender: FDA-Public Use
  Company Number: LT-ELI_LILLY_AND_COMPANY-LT201611005926

PATIENT
  Age: 72 Year

DRUGS (12)
  1. DEXA                               /00016001/ [Concomitant]
     Active Substance: DEXAMETHASONE
     Indication: PREMEDICATION
     Dosage: UNK UNK, UNKNOWN
     Route: 065
  2. OXALIPLATIN. [Concomitant]
     Active Substance: OXALIPLATIN
     Indication: RECTAL CANCER STAGE IV
     Dosage: UNK UNK, UNKNOWN
     Route: 065
     Dates: start: 20160902, end: 20161030
  3. CLEMASTINE [Concomitant]
     Active Substance: CLEMASTINE
     Indication: PRODUCT USED FOR UNKNOWN INDICATION
     Dosage: UNK UNK, UNKNOWN
     Route: 042
  4. 5 FU [Concomitant]
     Active Substance: FLUOROURACIL
     Indication: RECTAL CANCER STAGE IV
     Dosage: UNK UNK, UNKNOWN
     Route: 040
  5. ERBITUX [Suspect]
     Active Substance: CETUXIMAB
     Indication: COLORECTAL CANCER METASTATIC
     Dosage: 100 MG, UNKNOWN
     Route: 042
     Dates: start: 20160916
  6. CALCIUM FOLINATE [Concomitant]
     Active Substance: LEUCOVORIN CALCIUM
     Indication: RECTAL CANCER STAGE IV
     Dosage: UNK UNK, UNKNOWN
     Route: 042
     Dates: start: 20160902, end: 20161030
  7. 5 FU [Concomitant]
     Active Substance: FLUOROURACIL
     Dosage: 600 MG/M2 WITH SOLUTION OF SODIUM CHLORIDE 0.9% 1000 ML (2500MG AT ALL)
     Route: 042
     Dates: start: 20160902, end: 20161030
  8. BEVACIZUMAB [Concomitant]
     Active Substance: BEVACIZUMAB
     Indication: RECTAL CANCER STAGE IV
     Dosage: UNK UNK, UNKNOWN
     Route: 065
     Dates: start: 20160902, end: 20161030
  9. RANITIDINE. [Concomitant]
     Active Substance: RANITIDINE
     Indication: PREMEDICATION
     Dosage: UNK UNK, UNKNOWN
     Route: 065
  10. TAVEGYL [Concomitant]
     Active Substance: CLEMASTINE FUMARATE
     Indication: PREMEDICATION
     Dosage: UNK UNK, UNKNOWN
     Route: 065
  11. ONDANSETRON [Concomitant]
     Active Substance: ONDANSETRON
     Indication: PRODUCT USED FOR UNKNOWN INDICATION
     Dosage: 8 MG, BID
     Route: 042
  12. METOCLOPRAMIDE. [Concomitant]
     Active Substance: METOCLOPRAMIDE
     Indication: PRODUCT USED FOR UNKNOWN INDICATION
     Dosage: 20 MG, TID
     Route: 042

REACTIONS (6)
  - Cytokine release syndrome [Recovered/Resolved]
  - Chills [Recovered/Resolved]
  - Pallor [Recovered/Resolved]
  - Body temperature increased [Recovered/Resolved]
  - Vasospasm [Recovered/Resolved]
  - Angina pectoris [Recovered/Resolved]

NARRATIVE: CASE EVENT DATE: 20160916
